FAERS Safety Report 8259409-0 (Version None)
Quarter: 2012Q2

REPORT INFORMATION
  Report Type: 
  Country: None (occurrence: None)
  Receive Date: 20120404
  Receipt Date: 20120402
  Transmission Date: 20120825
  Serious: Yes (Hospitalization, Disabling)
  Sender: FDA-Public Use
  Company Number: CO-GILEAD-2012-0050806

PATIENT
  Age: 45 Year
  Sex: Male

DRUGS (2)
  1. ETRAVIRINE [Concomitant]
     Indication: HIV INFECTION
     Dosage: 200 MG, UNK
     Route: 048
     Dates: start: 20110801, end: 20111212
  2. EMTRICITABINE AND TENOFOVIR DISOPROXIL FUMARATE [Suspect]
     Indication: HIV INFECTION
     Dosage: 1 DF, QD
     Route: 048
     Dates: start: 20100601, end: 20111212

REACTIONS (7)
  - SPLENIC ARTERY ANEURYSM [None]
  - CONVULSION [None]
  - HAEMORRHAGE [None]
  - PANCREATITIS NECROTISING [None]
  - LACTIC ACIDOSIS [None]
  - HEPATITIS TOXIC [None]
  - ALTERED STATE OF CONSCIOUSNESS [None]
